FAERS Safety Report 4296343-5 (Version None)
Quarter: 2004Q1

REPORT INFORMATION
  Report Type: 
  Country: None (occurrence: None)
  Receive Date: 20040217
  Receipt Date: 20040205
  Transmission Date: 20041129
  Serious: Yes (Hospitalization)
  Sender: FDA-Public Use
  Company Number: PHRM2004FR00748

PATIENT
  Age: 66 Year
  Sex: Male

DRUGS (8)
  1. NEORAL [Suspect]
     Indication: BONE MARROW TRANSPLANT
     Dosage: 50 MG, QD
     Route: 048
     Dates: end: 20031210
  2. ORACILLINE [Suspect]
     Dosage: 1 MIU, QD
     Route: 048
     Dates: start: 20031105
  3. TRIFLUCAN [Suspect]
     Dosage: 50 MG, QD
     Route: 048
     Dates: start: 20031115, end: 20031231
  4. BACTRIM [Suspect]
     Dosage: 1 G, QD
     Route: 048
     Dates: start: 20031129
  5. ZELITREX [Suspect]
     Dosage: 500 MG, QD
     Route: 048
     Dates: start: 20031115
  6. CELLCEPT [Suspect]
     Dosage: 1 G, QD
     Route: 048
     Dates: start: 20031210, end: 20031227
  7. LEDERFOLIN [Suspect]
     Dosage: 20 MG / DAY
     Route: 048
  8. CORTANCYL [Suspect]
     Dosage: 30 MG / DAY
     Route: 048

REACTIONS (7)
  - ASTHENIA [None]
  - C-REACTIVE PROTEIN INCREASED [None]
  - INFECTION [None]
  - LEUKOPENIA [None]
  - NEUTROPENIA [None]
  - PLATELET COUNT DECREASED [None]
  - PYREXIA [None]
